FAERS Safety Report 9163264 (Version 4)
Quarter: 2014Q3

REPORT INFORMATION
  Report Type: Report from Study
  Country: GB (occurrence: GB)
  Receive Date: 20130314
  Receipt Date: 20140716
  Transmission Date: 20150326
  Serious: Yes (Hospitalization)
  Sender: FDA-Public Use
  Company Number: GB-ROCHE-1200861

PATIENT
  Age: 93 Year
  Sex: Female

DRUGS (2)
  1. RANIBIZUMAB [Suspect]
     Active Substance: RANIBIZUMAB
     Dosage: ON 05/FEB/2012, THE PATIENT RECEIVED THE LAST DOSE OF RANIBIZUMAB INJECTION.
     Route: 050
     Dates: start: 20120911
  2. RANIBIZUMAB [Suspect]
     Active Substance: RANIBIZUMAB
     Indication: AGE-RELATED MACULAR DEGENERATION
     Route: 050
     Dates: start: 20120814

REACTIONS (2)
  - Hypotension [Recovered/Resolved]
  - Charles Bonnet syndrome [Unknown]

NARRATIVE: CASE EVENT DATE: 20120911
